FAERS Safety Report 6138534-4 (Version None)
Quarter: 2009Q1

REPORT INFORMATION
  Report Type: 
  Country: None (occurrence: None)
  Receive Date: 20090331
  Receipt Date: 20090317
  Transmission Date: 20090719
  Serious: Yes (Hospitalization)
  Sender: FDA-Public Use
  Company Number: FR-CELGENEUS-056-C5013-09031031

PATIENT
  Sex: Male
  Weight: 74 kg

DRUGS (7)
  1. CC-5013 [Suspect]
     Indication: NON-HODGKIN'S LYMPHOMA
     Route: 048
     Dates: start: 20090310, end: 20090317
  2. CORTANCYL [Concomitant]
     Indication: INFLAMMATION
     Route: 048
     Dates: start: 20090220
  3. ACETAMINOPHEN AND CODEINE PHOSPHATE [Concomitant]
     Indication: PAIN
     Route: 048
     Dates: start: 20090311
  4. KARDEGIC [Concomitant]
     Indication: THROMBOSIS PROPHYLAXIS
     Route: 048
     Dates: start: 20090311
  5. ALLOPURINOL [Concomitant]
     Route: 048
     Dates: start: 20090311
  6. DURAGESIC-100 [Concomitant]
     Indication: PAIN
     Route: 065
     Dates: start: 20090311
  7. ZELITREX [Concomitant]
     Indication: PROPHYLAXIS
     Route: 048
     Dates: start: 20090311

REACTIONS (1)
  - TUMOUR FLARE [None]
